FAERS Safety Report 6252100-1 (Version None)
Quarter: 2009Q2

REPORT INFORMATION
  Report Type: 
  Country: None (occurrence: None)
  Receive Date: 20090630
  Receipt Date: 20050709
  Transmission Date: 20091009
  Serious: Yes (Hospitalization)
  Sender: FDA-Public Use
  Company Number: US-ROCHE-638964

PATIENT
  Sex: Male

DRUGS (5)
  1. ENFUVIRTIDE [Suspect]
     Route: 065
     Dates: start: 20050420, end: 20070730
  2. APTIVUS [Concomitant]
     Dates: start: 20050420, end: 20061005
  3. NORVIR [Concomitant]
     Dates: start: 20050420, end: 20070108
  4. TRUVADA [Concomitant]
     Dosage: FREQUENCY REPORTED AS QD
     Dates: start: 20050420, end: 20070730
  5. BACTRIM [Concomitant]
     Dosage: FREQUENCY REPORTED AS QD. DRUG NAME REPORTED AS BACTRIM DS
     Dates: end: 20070730

REACTIONS (9)
  - ANAEMIA OF CHRONIC DISEASE [None]
  - DEHYDRATION [None]
  - GASTROOESOPHAGEAL REFLUX DISEASE [None]
  - HERNIA OBSTRUCTIVE [None]
  - HIV INFECTION [None]
  - NEURALGIA [None]
  - PAIN [None]
  - PNEUMONIA [None]
  - URINARY RETENTION [None]
